FAERS Safety Report 18155202 (Version 1)
Quarter: 2020Q3

REPORT INFORMATION
  Report Type: Spontaneous
  Country: US (occurrence: US)
  Receive Date: 20200817
  Receipt Date: 20200817
  Transmission Date: 20201103
  Serious: No
  Sender: FDA-Public Use
  Company Number: US-ALLERGAN-2007578US

PATIENT
  Age: 60 Year
  Sex: Male

DRUGS (7)
  1. ANDRODERM [Suspect]
     Active Substance: TESTOSTERONE
     Indication: ANDROGEN REPLACEMENT THERAPY
     Dosage: 1 DF, QD
     Route: 062
  2. AMLODIPINE [Concomitant]
     Active Substance: AMLODIPINE BESYLATE
  3. BENAZEPRIL HCL [Concomitant]
     Active Substance: BENAZEPRIL HYDROCHLORIDE
  4. BACLOFEN. [Concomitant]
     Active Substance: BACLOFEN
  5. VOLTAREN [Concomitant]
     Active Substance: DICLOFENAC SODIUM
     Dosage: UNK, PRN
  6. DICLOFENAC [Concomitant]
     Active Substance: DICLOFENAC
     Dosage: UNK, PRN
     Route: 048
  7. VOLTAREN [Concomitant]
     Active Substance: DICLOFENAC SODIUM
     Dosage: UNK, PRN

REACTIONS (9)
  - Drug ineffective [Unknown]
  - Sleep disorder [Unknown]
  - Application site discolouration [Not Recovered/Not Resolved]
  - Accidental exposure to product [Unknown]
  - Application site erythema [Recovered/Resolved]
  - Application site dryness [Not Recovered/Not Resolved]
  - Application site urticaria [Recovered/Resolved]
  - Application site pruritus [Recovered/Resolved]
  - Device leakage [Unknown]

NARRATIVE: CASE EVENT DATE: 2020
